FAERS Safety Report 5670939-8 (Version None)
Quarter: 2008Q2

REPORT INFORMATION
  Report Type: 
  Country: None (occurrence: None)
  Receive Date: 20080305
  Receipt Date: 20071120
  Transmission Date: 20081010
  Serious: Yes (Other)
  Sender: FDA-Public Use
  Company Number: BDI-010614

PATIENT
  Age: 22 Year
  Sex: Female

DRUGS (4)
  1. ISOVUE-370 [Suspect]
     Indication: UROGRAM
     Dosage: 50ML ONCE INTRAVENOUS
     Route: 042
     Dates: start: 20071016, end: 20071016
  2. EFFEXOR [Concomitant]
  3. NOVARING [Concomitant]
  4. LEXAPRO [Concomitant]

REACTIONS (1)
  - HYPERSENSITIVITY [None]
